FAERS Safety Report 4625734-5 (Version None)
Quarter: 2005Q1

REPORT INFORMATION
  Report Type: 
  Country: None (occurrence: None)
  Receive Date: 20050330
  Receipt Date: 20050318
  Transmission Date: 20050727
  Serious: Yes (Life-Threatening)
  Sender: FDA-Public Use
  Company Number: PL-2005-004043

PATIENT
  Age: 41 Year
  Sex: Male

DRUGS (2)
  1. ULTRAVIST 370 [Suspect]
     Indication: ARTERIOGRAM CORONARY
     Dosage: 100 ML, 1 DOSE, INTRACORONARY
     Route: 022
     Dates: start: 20050318, end: 20050318
  2. TERTENSIF (INDAPAMIDE) [Concomitant]

REACTIONS (5)
  - ACUTE MYOCARDIAL INFARCTION [None]
  - BLOOD PRESSURE DECREASED [None]
  - BRADYCARDIA [None]
  - CARDIOVASCULAR DISORDER [None]
  - CONTRAST MEDIA REACTION [None]
